FAERS Safety Report 4950706-0 (Version None)
Quarter: 2006Q1

REPORT INFORMATION
  Report Type: 
  Country: None (occurrence: None)
  Receive Date: 20060321
  Receipt Date: 20060321
  Transmission Date: 20060701
  Serious: Yes (Other)
  Sender: FDA-Public Use
  Company Number: None

PATIENT
  Age: 74 Year
  Sex: Male
  Weight: 116.1 kg

DRUGS (17)
  1. ATENOLOL [Suspect]
  2. LISINOPRIL [Concomitant]
  3. TRAZODONE HCL [Concomitant]
  4. POTASSIUM CHLORIDE  20 MEQ/15ML (SF) LIQ [Concomitant]
  5. SIMVASTATIN [Concomitant]
  6. SYNTHROID [Concomitant]
  7. METFORMIN HYDROCHLORIDE [Concomitant]
  8. POTASSIUM CHLORIDE  10MEQ SA TAB [Concomitant]
  9. TESTOSTERONE CYPIONATE [Concomitant]
  10. LORAZEPAM [Concomitant]
  11. OMEPRAZOLE [Concomitant]
  12. FELODIPINE [Concomitant]
  13. ALBUTEROL [Concomitant]
  14. NITROGLYCERIN [Concomitant]
  15. TRIAMTERENE AND HYDROCHLOROTHIAZIDE [Concomitant]
  16. FORMOTEROL FUMARATE [Concomitant]
  17. INSULIN NOVOLIN 70/30 (NPH/REG) [Concomitant]

REACTIONS (1)
  - COUGH [None]
